FAERS Safety Report 19790837 (Version 2)
Quarter: 2021Q4

REPORT INFORMATION
  Report Type: Spontaneous
  Country: JP (occurrence: JP)
  Receive Date: 20210906
  Receipt Date: 20211101
  Transmission Date: 20220303
  Serious: Yes (Death, Hospitalization, Other)
  Sender: FDA-Public Use
  Company Number: JP-NOVARTISPH-NVSJ2021JP010929

PATIENT
  Age: 92 Year
  Sex: Female

DRUGS (4)
  1. ENTRESTO [Suspect]
     Active Substance: SACUBITRIL\VALSARTAN
     Indication: Cardiac failure chronic
     Dosage: 50 MG
     Route: 048
     Dates: start: 20210628, end: 20210712
  2. AZOSEMIDE [Concomitant]
     Active Substance: AZOSEMIDE
     Indication: Product used for unknown indication
     Dosage: 30 MG
     Route: 048
  3. AZOSEMIDE [Concomitant]
     Active Substance: AZOSEMIDE
     Dosage: 15 MG
     Route: 065
  4. SPIRONOLACTONE [Concomitant]
     Active Substance: SPIRONOLACTONE
     Indication: Product used for unknown indication
     Dosage: 25 MG
     Route: 048

REACTIONS (4)
  - Death [Fatal]
  - Subarachnoid haemorrhage [Unknown]
  - Blood pressure decreased [Recovering/Resolving]
  - Dizziness postural [Recovering/Resolving]

NARRATIVE: CASE EVENT DATE: 20210712
